FAERS Safety Report 15210041 (Version 1)
Quarter: 2018Q3

REPORT INFORMATION
  Report Type: Spontaneous
  Country: FI (occurrence: FI)
  Receive Date: 20180727
  Receipt Date: 20180727
  Transmission Date: 20181010
  Serious: Yes (Hospitalization, Other)
  Sender: FDA-Public Use
  Company Number: PHHY2018FI053566

PATIENT
  Age: 34 Year
  Sex: Male

DRUGS (3)
  1. TACROLIMUS. [Suspect]
     Active Substance: TACROLIMUS
     Indication: INTESTINAL TRANSPLANT
     Route: 065
  2. MYCOPHENOLIC ACID. [Concomitant]
     Active Substance: MYCOPHENOLIC ACID
     Indication: INTESTINAL TRANSPLANT
     Dosage: 720 MG, UNK
     Route: 065
  3. METHYLPREDNISOLONE. [Concomitant]
     Active Substance: METHYLPREDNISOLONE
     Indication: INTESTINAL TRANSPLANT
     Dosage: 6 MG, QD
     Route: 065

REACTIONS (8)
  - Transplant rejection [Recovered/Resolved]
  - Volvulus [Recovered/Resolved]
  - Product use in unapproved indication [Unknown]
  - Volvulus [Unknown]
  - Cytomegalovirus gastroenteritis [Recovered/Resolved]
  - Intestine transplant rejection [Recovered/Resolved]
  - Off label use [Unknown]
  - Gastroenteritis norovirus [Not Recovered/Not Resolved]
